FAERS Safety Report 12422250 (Version 1)
Quarter: 2016Q2

REPORT INFORMATION
  Report Type: Report from Study
  Country: US (occurrence: US)
  Receive Date: 20160601
  Receipt Date: 20160601
  Transmission Date: 20160815
  Serious: Yes (Hospitalization, Other)
  Sender: FDA-Public Use
  Company Number: US-BRISTOL-MYERS SQUIBB COMPANY-BMS-2016-042272

PATIENT
  Age: 69 Year
  Sex: Male

DRUGS (2)
  1. COBIMETINIB [Suspect]
     Active Substance: COBIMETINIB
     Indication: PRODUCT USED FOR UNKNOWN INDICATION
     Dosage: 60 MG, QD
     Route: 048
     Dates: start: 201604
  2. NIVOLUMAB [Suspect]
     Active Substance: NIVOLUMAB
     Indication: METASTATIC MALIGNANT MELANOMA
     Dosage: UNK
     Route: 065

REACTIONS (1)
  - Rhabdomyolysis [Unknown]

NARRATIVE: CASE EVENT DATE: 20160513
